FAERS Safety Report 9642761 (Version 2)
Quarter: 2013Q4

REPORT INFORMATION
  Report Type: Spontaneous
  Country: US (occurrence: US)
  Receive Date: 20131024
  Receipt Date: 20131126
  Transmission Date: 20140711
  Serious: Yes (Hospitalization)
  Sender: FDA-Public Use
  Company Number: US-PERRIGO-13US010603

PATIENT
  Age: 8 Year
  Sex: Female
  Weight: 18.14 kg

DRUGS (2)
  1. MUPIROCIN 2% RX 1N2 [Suspect]
     Indication: MOLLUSCUM CONTAGIOSUM
     Dosage: 1 APPLICATION TO LEFT LEG, BID
     Route: 061
     Dates: start: 201309, end: 201309
  2. MUPIROCIN 2% RX 1N2 [Suspect]
     Dosage: SINGLE APPLICATION TO RIGHT LEG
     Route: 061
     Dates: start: 20131011, end: 20131012

REACTIONS (6)
  - Cellulitis [Recovering/Resolving]
  - Local swelling [Recovered/Resolved]
  - Inflammation [Recovering/Resolving]
  - Erythema [Recovering/Resolving]
  - Abscess [Recovered/Resolved]
  - Wound secretion [Recovering/Resolving]
